FAERS Safety Report 17595181 (Version 4)
Quarter: 2020Q2

REPORT INFORMATION
  Report Type: Report from Study
  Country: US (occurrence: US)
  Receive Date: 20200328
  Receipt Date: 20200611
  Transmission Date: 20200713
  Serious: No
  Sender: FDA-Public Use
  Company Number: NVSC2020US081607

PATIENT
  Sex: Female
  Weight: 134.5 kg

DRUGS (2)
  1. ILARIS [Suspect]
     Active Substance: CANAKINUMAB
     Indication: PYREXIA
     Dosage: 150 MG/KG, QMO
     Route: 058
  2. ILARIS [Suspect]
     Active Substance: CANAKINUMAB
     Dosage: 300 MG(EVERY 4 WEEKS)
     Route: 058

REACTIONS (4)
  - Pyrexia [Unknown]
  - Drug ineffective [Unknown]
  - Growth disorder [Unknown]
  - Weight decreased [Unknown]
